FAERS Safety Report 15709072 (Version 2)
Quarter: 2021Q1

REPORT INFORMATION
  Report Type: Spontaneous
  Country: CA (occurrence: CA)
  Receive Date: 20181211
  Receipt Date: 20210302
  Transmission Date: 20210419
  Serious: Yes (Death, Other)
  Sender: FDA-Public Use
  Company Number: CA-PURDUE PHARMA-CAN-2018-0009399

PATIENT
  Age: 17 Year
  Sex: Male

DRUGS (2)
  1. MORPHINE SULFATE (SIMILAR TO NDA 19?516) [Suspect]
     Active Substance: MORPHINE SULFATE
     Indication: PROCEDURAL PAIN
     Dosage: 5 MG, SINGLE
     Route: 065
  2. MORPHINE SULFATE. [Suspect]
     Active Substance: MORPHINE SULFATE
     Indication: PROCEDURAL PAIN
     Dosage: 5 MG, SINGLE
     Route: 065

REACTIONS (9)
  - Drug monitoring procedure incorrectly performed [Fatal]
  - Bradycardia [Unknown]
  - Brain hypoxia [Unknown]
  - Condition aggravated [Unknown]
  - Heart rate decreased [Unknown]
  - Seizure [Unknown]
  - Brain death [Fatal]
  - Cardio-respiratory arrest [Recovered/Resolved with Sequelae]
  - Overdose [Fatal]

NARRATIVE: CASE EVENT DATE: 20180114
